FAERS Safety Report 6803721-6 (Version None)
Quarter: 2010Q2

REPORT INFORMATION
  Report Type: 
  Country: None (occurrence: None)
  Receive Date: 20100628
  Receipt Date: 20100401
  Transmission Date: 20101027
  Serious: No
  Sender: FDA-Public Use
  Company Number: US-TYCO HEALTHCARE/MALLINCKRODT-T201001029

PATIENT

DRUGS (1)
  1. TUSSICAPS EXTENDED-RELEASE [Suspect]
     Dosage: 1 TABLET, BID
     Dates: start: 20100328

REACTIONS (2)
  - ACCIDENTAL OVERDOSE [None]
  - POLLAKIURIA [None]
